FAERS Safety Report 4758278-0 (Version None)
Quarter: 2005Q3

REPORT INFORMATION
  Report Type: 
  Country: None (occurrence: None)
  Receive Date: 20050826
  Receipt Date: 20050616
  Transmission Date: 20060218
  Serious: No
  Sender: FDA-Public Use
  Company Number: WAES0506USA02647

PATIENT
  Age: 84 Year
  Sex: Female
  Weight: 52.6173 kg

DRUGS (5)
  1. ZETIA [Suspect]
     Indication: BLOOD CHOLESTEROL INCREASED
     Dosage: 10 MG DAILY PO
     Route: 048
     Dates: start: 20040101
  2. COUMADIN [Concomitant]
  3. DARVOCET-N 100 [Concomitant]
  4. LEVOXYL [Concomitant]
  5. LISINOPRIL [Concomitant]

REACTIONS (1)
  - ALOPECIA [None]
